FAERS Safety Report 16789959 (Version 1)
Quarter: 2019Q3

REPORT INFORMATION
  Report Type: Report from Study
  Country: US (occurrence: US)
  Receive Date: 20190910
  Receipt Date: 20190910
  Transmission Date: 20191005
  Serious: Yes (Hospitalization, Other)
  Sender: FDA-Public Use
  Company Number: PHHO2019US007560

PATIENT

DRUGS (3)
  1. CARBOPLATIN. [Suspect]
     Active Substance: CARBOPLATIN
     Indication: FALLOPIAN TUBE CANCER
     Dosage: TOTAL DOSE: 507 MG (EVERY 21 DAYS)
     Route: 042
     Dates: start: 20190515, end: 20190626
  2. PACLITAXEL. [Suspect]
     Active Substance: PACLITAXEL
     Indication: FALLOPIAN TUBE CANCER
     Dosage: TOTAL DOSE: 480 MG
     Route: 042
     Dates: start: 20190515, end: 20190710
  3. INC424A [Suspect]
     Active Substance: RUXOLITINIB
     Indication: FALLOPIAN TUBE CANCER
     Dosage: 15 MG, BID (FOR 21 DAYS)
     Route: 048
     Dates: start: 20190515, end: 20190716

REACTIONS (3)
  - Anaemia [Not Recovered/Not Resolved]
  - Haematoma [Not Recovered/Not Resolved]
  - Pulmonary embolism [Unknown]

NARRATIVE: CASE EVENT DATE: 20190710
